FAERS Safety Report 4957849-6 (Version None)
Quarter: 2006Q1

REPORT INFORMATION
  Report Type: 
  Country: None (occurrence: None)
  Receive Date: 20060324
  Receipt Date: 20060319
  Transmission Date: 20060701
  Serious: Yes (Other)
  Sender: FDA-Public Use
  Company Number: 2006038563

PATIENT
  Age: 16 Year
  Sex: Male

DRUGS (5)
  1. NEURONTIN [Suspect]
     Indication: AFFECTIVE DISORDER
     Dosage: 900 MG (300 MG, 3 IN 1 D), ORAL
     Route: 048
  2. ZOLOFT [Concomitant]
  3. ADDERALL XR (AMFETAMINE ASPARTATE, AMFETAMINE SULFATE, DEXAMFETAMINE S [Concomitant]
  4. LORATADINE [Concomitant]
  5. ANTI-ASTHMATICS (ANTI-ASTHMATICS) [Concomitant]

REACTIONS (3)
  - ACCIDENTAL EXPOSURE [None]
  - FOREIGN BODY ASPIRATION [None]
  - INCORRECT ROUTE OF DRUG ADMINISTRATION [None]
